FAERS Safety Report 9013263 (Version 1)
Quarter: 2013Q1

REPORT INFORMATION
  Report Type: Spontaneous
  Country: US (occurrence: None)
  Receive Date: 20130107
  Receipt Date: 20130107
  Transmission Date: 20140127
  Serious: Yes (Life-Threatening, Hospitalization)
  Sender: FDA-Public Use
  Company Number: None

PATIENT
  Age: 44 Year
  Sex: Female
  Weight: 56.7 kg

DRUGS (2)
  1. TAMIFLU [Suspect]
     Indication: INFLUENZA B VIRUS TEST POSITIVE
     Dosage: 1 CAPSULE 2X DAILY ORAL
     Route: 048
     Dates: start: 20121228, end: 20130102
  2. PREDNISONE [Suspect]
     Indication: HYPERSENSITIVITY
     Dosage: 1 TABLET 3XDAILY ORAL
     Route: 048
     Dates: start: 20130101, end: 20130103

REACTIONS (4)
  - Pruritus [None]
  - Rash generalised [None]
  - Pruritus [None]
  - Drug hypersensitivity [None]
